FAERS Safety Report 6439232-X (Version None)
Quarter: 2009Q4

REPORT INFORMATION
  Report Type: 
  Country: None (occurrence: None)
  Receive Date: 20091113
  Receipt Date: 20091103
  Transmission Date: 20100525
  Serious: Yes (Other)
  Sender: FDA-Public Use
  Company Number: US-PFIZER INC-2009292948

PATIENT
  Sex: Male

DRUGS (1)
  1. SUTENT [Suspect]
     Indication: RENAL CELL CARCINOMA STAGE IV
     Dosage: 5 DAYS/WEEKS FOR 4 WEEKS ON AND 2 WEEKS OFF

REACTIONS (3)
  - BLOOD CREATININE INCREASED [None]
  - NEUROPATHY PERIPHERAL [None]
  - SKIN TOXICITY [None]
